FAERS Safety Report 5219007-X (Version None)
Quarter: 2007Q1

REPORT INFORMATION
  Report Type: 
  Country: None (occurrence: None)
  Receive Date: 20070125
  Receipt Date: 20070117
  Transmission Date: 20070707
  Serious: Yes (Life-Threatening, Hospitalization, Disabling)
  Sender: FDA-Public Use
  Company Number: RO-ROCHE-478922

PATIENT
  Age: 70 Year
  Sex: Female

DRUGS (5)
  1. BONVIVA [Suspect]
     Route: 048
     Dates: start: 20060715, end: 20061215
  2. EUTHYROX [Concomitant]
  3. PREDNISONE [Concomitant]
     Dates: start: 20020615
  4. EGILOK [Concomitant]
  5. ATORVASTATIN CALCIUM [Concomitant]
     Dates: start: 20020615

REACTIONS (3)
  - ARTHRALGIA [None]
  - FACE OEDEMA [None]
  - JOINT SWELLING [None]
